FAERS Safety Report 5410889-5 (Version None)
Quarter: 2007Q3

REPORT INFORMATION
  Report Type: 
  Country: None (occurrence: None)
  Receive Date: 20070810
  Receipt Date: 20070730
  Transmission Date: 20080115
  Serious: Yes (Other)
  Sender: FDA-Public Use
  Company Number: CA-JNJFOC-20070603588

PATIENT
  Sex: Male

DRUGS (6)
  1. REMICADE [Suspect]
     Indication: CROHN'S DISEASE
     Route: 042
  2. LOSEC [Concomitant]
     Route: 048
  3. COUMADIN [Concomitant]
     Indication: DEEP VEIN THROMBOSIS
     Route: 048
  4. PREDNISONE TAB [Concomitant]
     Route: 048
  5. CALCIUM CHLORIDE [Concomitant]
     Route: 048
  6. IRON [Concomitant]
     Route: 048

REACTIONS (5)
  - BASAL CELL CARCINOMA [None]
  - FALL [None]
  - HAND FRACTURE [None]
  - SKIN ULCER [None]
  - SQUAMOUS CELL CARCINOMA [None]
